FAERS Safety Report 5129707-8 (Version None)
Quarter: 2006Q4

REPORT INFORMATION
  Report Type: 
  Country: None (occurrence: None)
  Receive Date: 20061018
  Receipt Date: 20061006
  Transmission Date: 20070319
  Serious: Yes (Other)
  Sender: FDA-Public Use
  Company Number: FR-GLAXOSMITHKLINE-B0442476A

PATIENT
  Sex: Female

DRUGS (7)
  1. LAMOTRIGINE [Suspect]
     Dosage: 75MG PER DAY
     Route: 048
     Dates: start: 20060919
  2. ASPIRIN [Concomitant]
     Route: 048
  3. DIHYDAN [Concomitant]
  4. NORSET [Concomitant]
  5. LEVOTHYROXINE SODIUM [Concomitant]
  6. IMOVANE [Concomitant]
  7. SPECIAFOLDINE [Concomitant]

REACTIONS (1)
  - CHOLESTASIS [None]
